FAERS Safety Report 9779057 (Version 3)
Quarter: 2014Q1

REPORT INFORMATION
  Report Type: Spontaneous
  Country: JP (occurrence: JP)
  Receive Date: 20131223
  Receipt Date: 20140228
  Transmission Date: 20141002
  Serious: Yes (Hospitalization)
  Sender: FDA-Public Use
  Company Number: JP-PFIZER INC-2013363224

PATIENT
  Age: 63 Year
  Sex: Male
  Weight: 45.8 kg

DRUGS (8)
  1. GABAPEN [Suspect]
     Indication: EPILEPSY
     Dosage: 100 MG, 1X/DAY
     Route: 048
     Dates: start: 20130803, end: 20130806
  2. E KEPPRA [Suspect]
     Indication: EPILEPSY
     Dosage: 250 MG, 2X/DAY
     Route: 048
     Dates: start: 20130730, end: 20130806
  3. SILECE [Suspect]
     Indication: INSOMNIA
     Dosage: 1 MG, 1X/DAY
     Route: 048
     Dates: start: 20130802, end: 20130806
  4. OLMETEC [Concomitant]
     Indication: HYPERTENSION
     Dosage: 20 MG, 1X/DAY
     Route: 048
     Dates: start: 20130731
  5. BROTIZOLAM [Concomitant]
     Indication: INSOMNIA
     Dosage: 0.25 MG, 1X/DAY
     Route: 048
     Dates: start: 20130731
  6. PLAVIX [Concomitant]
     Indication: PROPHYLAXIS
     Dosage: 75 MG, 1X/DAY
     Route: 048
     Dates: start: 20130731
  7. SEPAMIT [Concomitant]
     Indication: HYPERTENSION
     Dosage: 15 MG, 2X/DAY
     Route: 048
     Dates: start: 20130731
  8. DEPAKENE [Concomitant]
     Indication: EPILEPSY
     Dosage: 4 ML, 2X/DAY
     Route: 048
     Dates: start: 20130731

REACTIONS (1)
  - Drug-induced liver injury [Recovering/Resolving]
